FAERS Safety Report 10708483 (Version 1)
Quarter: 2015Q1

REPORT INFORMATION
  Report Type: Spontaneous
  Country: US (occurrence: US)
  Receive Date: 20150113
  Receipt Date: 20150113
  Transmission Date: 20150721
  Serious: Yes (Other)
  Sender: FDA-Public Use
  Company Number: US-ASTRAZENECA-2015SE01004

PATIENT
  Sex: Male

DRUGS (2)
  1. CELEBREX [Suspect]
     Active Substance: CELECOXIB
     Route: 065
  2. CRESTOR [Suspect]
     Active Substance: ROSUVASTATIN CALCIUM
     Route: 048

REACTIONS (7)
  - Diabetes mellitus [Unknown]
  - Arthritis [Unknown]
  - Blood cholesterol increased [Unknown]
  - Arthropathy [Unknown]
  - Blood pressure increased [Unknown]
  - Liver disorder [Unknown]
  - Abasia [Unknown]
